FAERS Safety Report 5790084-0 (Version None)
Quarter: 2008Q2

REPORT INFORMATION
  Report Type: 
  Country: None (occurrence: None)
  Receive Date: 20080626
  Receipt Date: 20080428
  Transmission Date: 20081010
  Serious: No
  Sender: FDA-Public Use
  Company Number: A0672279A

PATIENT
  Age: 38 Year
  Sex: Female

DRUGS (1)
  1. ALLI [Suspect]

REACTIONS (9)
  - ANOREXIA [None]
  - FALL [None]
  - FEELING ABNORMAL [None]
  - FRUSTRATION [None]
  - GASTROINTESTINAL DISORDER [None]
  - MALAISE [None]
  - MIGRAINE [None]
  - PAIN [None]
  - WEIGHT INCREASED [None]
